FAERS Safety Report 17096939 (Version 1)
Quarter: 2019Q4

REPORT INFORMATION
  Report Type: Spontaneous
  Country: SE (occurrence: SE)
  Receive Date: 20191202
  Receipt Date: 20191202
  Transmission Date: 20200122
  Serious: Yes (Hospitalization)
  Sender: FDA-Public Use
  Company Number: SE-TEVA-2019-SE-1144226

PATIENT
  Age: 63 Year
  Sex: Male

DRUGS (3)
  1. LERGIGAN FORTE (PROMETHAZINE HYDROCHLORIDE) [Suspect]
     Active Substance: PROMETHAZINE HYDROCHLORIDE
     Dosage: 50 MG, A JAR 100 PCS
     Route: 048
     Dates: start: 20180101, end: 20180101
  2. TRAMADOL. [Suspect]
     Active Substance: TRAMADOL
     Dosage: 19 PIECES
     Dates: start: 20180101, end: 20180101
  3. GABAPENTIN. [Suspect]
     Active Substance: GABAPENTIN
     Dosage: 9 PIECES
     Dates: start: 20180101, end: 20180101

REACTIONS (2)
  - Intentional self-injury [Unknown]
  - Intentional overdose [Unknown]

NARRATIVE: CASE EVENT DATE: 20180101
